FAERS Safety Report 6553301-5 (Version None)
Quarter: 2010Q1

REPORT INFORMATION
  Report Type: 
  Country: None (occurrence: None)
  Receive Date: 20100127
  Receipt Date: 20090604
  Transmission Date: 20100710
  Serious: No
  Sender: FDA-Public Use
  Company Number: A0789539A

PATIENT
  Age: 58 Year
  Sex: Female

DRUGS (2)
  1. IMITREX [Suspect]
     Indication: MIGRAINE
     Route: 065
  2. SUBOXONE [Suspect]
     Dosage: 8MG TWICE PER DAY
     Route: 060
     Dates: start: 20090430

REACTIONS (3)
  - BURNING SENSATION [None]
  - CHEST PAIN [None]
  - WITHDRAWAL SYNDROME [None]
